FAERS Safety Report 6968665-8 (Version None)
Quarter: 2010Q3

REPORT INFORMATION
  Report Type: 
  Country: None (occurrence: None)
  Receive Date: 20100907
  Receipt Date: 20100831
  Transmission Date: 20110219
  Serious: Yes (Other)
  Sender: FDA-Public Use
  Company Number: US-PFIZER INC-2010088761

PATIENT
  Sex: Male
  Weight: 86.168 kg

DRUGS (1)
  1. TOVIAZ [Suspect]
     Indication: HYPERTONIC BLADDER
     Dosage: 4 MG, UNK
     Dates: start: 20100501

REACTIONS (3)
  - FUNGAL INFECTION [None]
  - PENILE INFECTION [None]
  - RASH GENERALISED [None]
